FAERS Safety Report 23313832 (Version 1)
Quarter: 2023Q4

REPORT INFORMATION
  Report Type: Other
  Country: None (occurrence: US)
  Receive Date: 20231219
  Receipt Date: 20231219
  Transmission Date: 20240110
  Serious: Yes (Hospitalization, Other)
  Sender: FDA-Public Use
  Company Number: US-CrossMedika SA-2149532

PATIENT
  Age: 72 Year
  Sex: Male

DRUGS (2)
  1. VARDENAFIL HYDROCHLORIDE [Suspect]
     Active Substance: VARDENAFIL HYDROCHLORIDE
     Indication: Erectile dysfunction
  2. TADALAFIL [Interacting]
     Active Substance: TADALAFIL

REACTIONS (1)
  - Drug-induced liver injury [Recovered/Resolved]
